FAERS Safety Report 8141912-5 (Version None)
Quarter: 2012Q1

REPORT INFORMATION
  Report Type: 
  Country: None (occurrence: None)
  Receive Date: 20120216
  Receipt Date: 20120210
  Transmission Date: 20120608
  Serious: Yes (Hospitalization)
  Sender: FDA-Public Use
  Company Number: US-GLAXOSMITHKLINE-A0962927A

PATIENT
  Age: 18 Year
  Sex: Female
  Weight: 83.5 kg

DRUGS (9)
  1. PROTONIX [Concomitant]
  2. PREDNISONE [Suspect]
     Indication: IDIOPATHIC THROMBOCYTOPENIC PURPURA
     Dosage: 10MG PER DAY
     Route: 048
  3. STEROID [Suspect]
     Indication: PRODUCT USED FOR UNKNOWN INDICATION
  4. LEVAQUIN [Concomitant]
  5. NORVASC [Concomitant]
  6. PROMACTA [Suspect]
     Indication: IDIOPATHIC THROMBOCYTOPENIC PURPURA
     Dosage: 50MG PER DAY
     Route: 048
     Dates: start: 20111118, end: 20120110
  7. SPRINTEC [Suspect]
     Indication: CONTRACEPTION
     Route: 048
  8. PENICILLIN [Concomitant]
  9. ZOFRAN [Concomitant]

REACTIONS (10)
  - RENAL VEIN THROMBOSIS [None]
  - PAIN [None]
  - PELVIC INFLAMMATORY DISEASE [None]
  - URINARY RETENTION [None]
  - INFLAMMATION [None]
  - PYELOCALIECTASIS [None]
  - NAUSEA [None]
  - URINARY HESITATION [None]
  - BLADDER FIBROSIS [None]
  - URETERIC DILATATION [None]
